FAERS Safety Report 9873264 (Version 2)
Quarter: 2014Q1

REPORT INFORMATION
  Report Type: Other
  Country: US (occurrence: US)
  Receive Date: 20140206
  Receipt Date: 20140206
  Transmission Date: 20141002
  Serious: No
  Sender: FDA-Public Use
  Company Number: US-ACORDA-ACO_100883_2013

PATIENT
  Age: 70 Year
  Sex: Female
  Weight: 71.66 kg

DRUGS (5)
  1. AMPYRA [Suspect]
     Indication: MULTIPLE SCLEROSIS
     Dosage: 10 MG, BID
     Route: 048
     Dates: start: 20120326, end: 20131212
  2. COPAXONE [Concomitant]
     Indication: MULTIPLE SCLEROSIS
     Dosage: 20 MG, QD
     Route: 058
  3. VITAMIN D3 [Concomitant]
     Indication: MULTIPLE SCLEROSIS
     Dosage: 2000 IU, QD
     Route: 048
     Dates: start: 201304
  4. MTV [Concomitant]
     Indication: PRODUCT USED FOR UNKNOWN INDICATION
     Dosage: UNK, QD
     Route: 048
  5. CRANBERRY [Concomitant]
     Indication: URINARY TRACT INFECTION
     Dosage: UNK, QD
     Route: 048

REACTIONS (3)
  - Cystitis [Recovered/Resolved]
  - Sinus congestion [Unknown]
  - Throat irritation [Unknown]
